FAERS Safety Report 6245958-3 (Version None)
Quarter: 2009Q2

REPORT INFORMATION
  Report Type: 
  Country: None (occurrence: None)
  Receive Date: 20090626
  Receipt Date: 20080825
  Transmission Date: 20091009
  Serious: Yes (Life-Threatening, Other)
  Sender: FDA-Public Use
  Company Number: A0744462A

PATIENT
  Sex: Female

DRUGS (3)
  1. IMITREX [Suspect]
     Indication: MIGRAINE
     Route: 048
     Dates: start: 20080801, end: 20080801
  2. ESTROSTEP [Concomitant]
  3. ORAL CONTRACEPTIVE [Concomitant]

REACTIONS (3)
  - PALPITATIONS [None]
  - THROAT TIGHTNESS [None]
  - URTICARIA [None]
